FAERS Safety Report 6688362-6 (Version None)
Quarter: 2010Q2

REPORT INFORMATION
  Report Type: 
  Country: None (occurrence: None)
  Receive Date: 20100420
  Receipt Date: 20100409
  Transmission Date: 20101027
  Serious: Yes (Other)
  Sender: FDA-Public Use
  Company Number: PHHY2010BR22818

PATIENT
  Sex: Female

DRUGS (1)
  1. MIACALCIN [Suspect]

REACTIONS (2)
  - FEELING ABNORMAL [None]
  - SPINAL DISORDER [None]
